FAERS Safety Report 18205302 (Version 1)
Quarter: 2020Q3

REPORT INFORMATION
  Report Type: Report from Study
  Country: IT (occurrence: IT)
  Receive Date: 20200827
  Receipt Date: 20200827
  Transmission Date: 20201103
  Serious: Yes (Life-Threatening)
  Sender: FDA-Public Use
  Company Number: IT-PFIZER INC-2020331179

PATIENT
  Age: 76 Year
  Sex: Male

DRUGS (2)
  1. ALIMTA [Suspect]
     Active Substance: PEMETREXED DISODIUM
     Dosage: 800 MG, CYCLIC
     Route: 042
     Dates: start: 20170127
  2. CARBOPLATIN. [Suspect]
     Active Substance: CARBOPLATIN
     Indication: PLEURAL MESOTHELIOMA
     Dosage: 400 MG, CYCLIC
     Route: 042
     Dates: start: 20170127

REACTIONS (5)
  - Hyperhidrosis [Recovering/Resolving]
  - Drug hypersensitivity [Recovering/Resolving]
  - Foaming at mouth [Recovering/Resolving]
  - Vomiting [Recovering/Resolving]
  - Loss of consciousness [Recovering/Resolving]

NARRATIVE: CASE EVENT DATE: 20190624
